FAERS Safety Report 18082072 (Version 1)
Quarter: 2020Q3

REPORT INFORMATION
  Report Type: Spontaneous
  Country: US (occurrence: US)
  Receive Date: 20200728
  Receipt Date: 20200728
  Transmission Date: 20201103
  Serious: No
  Sender: FDA-Public Use
  Company Number: US-PERRIGO-19US007659

PATIENT
  Age: 76 Year
  Sex: Female
  Weight: 57.14 kg

DRUGS (3)
  1. SIMVASTATIN. [Concomitant]
     Active Substance: SIMVASTATIN
     Indication: BLOOD CHOLESTEROL INCREASED
     Dosage: 40 MG
     Route: 065
  2. MINOXIDIL. [Suspect]
     Active Substance: MINOXIDIL
     Indication: ALOPECIA
     Dosage: 1 ML, BID
     Route: 061
     Dates: start: 20190614, end: 20190616
  3. VITAMINS NOS [Concomitant]
     Active Substance: VITAMINS
     Indication: SUPPLEMENTATION THERAPY
     Dosage: UNK
     Route: 065

REACTIONS (9)
  - Diplopia [Not Recovered/Not Resolved]
  - Dermatitis contact [Recovering/Resolving]
  - Eye swelling [Recovering/Resolving]
  - Burning sensation [Recovered/Resolved]
  - Rash [Recovering/Resolving]
  - Scab [Recovering/Resolving]
  - Vision blurred [Not Recovered/Not Resolved]
  - Application site rash [Recovering/Resolving]
  - Off label use [Recovered/Resolved]

NARRATIVE: CASE EVENT DATE: 201906
